FAERS Safety Report 20138278 (Version 2)
Quarter: 2021Q4

REPORT INFORMATION
  Report Type: Spontaneous
  Country: ES (occurrence: ES)
  Receive Date: 20211202
  Receipt Date: 20211228
  Transmission Date: 20220304
  Serious: Yes (Other)
  Sender: FDA-Public Use
  Company Number: ES-SA-2021SA391867

PATIENT
  Age: 36 Year
  Sex: Male

DRUGS (4)
  1. ALPROLIX [Suspect]
     Active Substance: EFTRENONACOG ALFA
     Indication: Factor IX deficiency
     Dosage: 9000 IU, Q10D
  2. ALPROLIX [Suspect]
     Active Substance: EFTRENONACOG ALFA
     Indication: Factor IX deficiency
     Dosage: 9000 IU, Q10D
  3. ALPROLIX [Suspect]
     Active Substance: EFTRENONACOG ALFA
     Dosage: 6000 IU, QOD (EVERY 48 HOURS)
     Dates: start: 20211107
  4. ALPROLIX [Suspect]
     Active Substance: EFTRENONACOG ALFA
     Dosage: 6000 IU, QOD (EVERY 48 HOURS)
     Dates: start: 20211107

REACTIONS (3)
  - Haemarthrosis [Unknown]
  - Traumatic haemorrhage [Unknown]
  - Arthropathy [Unknown]

NARRATIVE: CASE EVENT DATE: 20211106
